FAERS Safety Report 5592870-9 (Version None)
Quarter: 2008Q1

REPORT INFORMATION
  Report Type: 
  Country: None (occurrence: None)
  Receive Date: 20080116
  Receipt Date: 20080108
  Transmission Date: 20080703
  Serious: Yes (Hospitalization, Other)
  Sender: FDA-Public Use
  Company Number: PHBS2008BR00604

PATIENT
  Age: 77 Year
  Sex: Male
  Weight: 86 kg

DRUGS (3)
  1. EXELON [Suspect]
     Indication: DEMENTIA ALZHEIMER'S TYPE
     Dosage: 1.5 MG, QD
     Route: 048
     Dates: start: 20070101
  2. EXELON [Suspect]
     Dosage: 3 MG, BID
     Route: 048
     Dates: end: 20071228
  3. EXELON [Suspect]
     Route: 048
     Dates: start: 20071230

REACTIONS (11)
  - ASTHENIA [None]
  - BRADYPHRENIA [None]
  - COLON NEOPLASM [None]
  - COLONIC OBSTRUCTION [None]
  - COLOSTOMY [None]
  - DISORIENTATION [None]
  - HALLUCINATION [None]
  - MOOD ALTERED [None]
  - NAUSEA [None]
  - VOMITING [None]
  - WEIGHT DECREASED [None]
